FAERS Safety Report 7282851-1 (Version None)
Quarter: 2011Q1

REPORT INFORMATION
  Report Type: 
  Country: None (occurrence: None)
  Receive Date: 20110209
  Receipt Date: 20110131
  Transmission Date: 20110831
  Serious: Yes (Hospitalization)
  Sender: FDA-Public Use
  Company Number: SE-JNJFOC-20110200642

PATIENT
  Age: 31 Year
  Sex: Female

DRUGS (7)
  1. REMICADE [Suspect]
     Route: 042
  2. PRONAXEN [Concomitant]
  3. REMICADE [Suspect]
     Route: 042
  4. NONSTEROIDAL ANTIINFLAMMATORY DRUGS [Concomitant]
  5. REMICADE [Suspect]
     Indication: PSORIATIC ARTHROPATHY
     Route: 042
  6. SALAZOPYRIN [Suspect]
     Indication: PSORIATIC ARTHROPATHY
  7. METHOTREXATE [Suspect]
     Indication: PSORIATIC ARTHROPATHY

REACTIONS (2)
  - TRANSAMINASES INCREASED [None]
  - HEPATIC STEATOSIS [None]
